FAERS Safety Report 21997974 (Version 4)
Quarter: 2023Q2

REPORT INFORMATION
  Report Type: Spontaneous
  Country: US (occurrence: US)
  Receive Date: 20230216
  Receipt Date: 20230623
  Transmission Date: 20230722
  Serious: No
  Sender: FDA-Public Use
  Company Number: US-GLAXOSMITHKLINE-US2023AMR021137

PATIENT
  Sex: Female

DRUGS (2)
  1. ZEJULA [Suspect]
     Active Substance: NIRAPARIB
     Indication: Fallopian tube cancer
     Dosage: 300 MG, QD
     Dates: start: 20230127
  2. ZEJULA [Suspect]
     Active Substance: NIRAPARIB
     Dosage: 300 MG, QD
     Route: 048

REACTIONS (8)
  - Constipation [Unknown]
  - Productive cough [Recovering/Resolving]
  - Chromaturia [Unknown]
  - Dysuria [Unknown]
  - Platelet count decreased [Unknown]
  - Cough [Unknown]
  - Allergic sinusitis [Unknown]
  - Nasal congestion [Recovered/Resolved]
